FAERS Safety Report 25697871 (Version 1)
Quarter: 2025Q3

REPORT INFORMATION
  Report Type: Spontaneous
  Country: JP (occurrence: None)
  Receive Date: 20250819
  Receipt Date: 20250819
  Transmission Date: 20251021
  Serious: Yes (Life-Threatening, Hospitalization)
  Sender: HARMAN FINOCHEM
  Company Number: JP-Harman-000121

PATIENT
  Age: 77 Year
  Sex: Male

DRUGS (5)
  1. METFORMIN [Suspect]
     Active Substance: METFORMIN HYDROCHLORIDE
     Indication: Diabetes mellitus
     Route: 048
  2. OLMESARTAN [Concomitant]
     Active Substance: OLMESARTAN
     Indication: Hypertension
     Route: 048
  3. AMLODIPINE [Concomitant]
     Active Substance: AMLODIPINE BESYLATE
     Indication: Hypertension
     Route: 048
  4. ALOGLIPTIN [Concomitant]
     Active Substance: ALOGLIPTIN
     Indication: Diabetes mellitus
     Route: 048
  5. FEBUXOSTAT [Concomitant]
     Active Substance: FEBUXOSTAT
     Indication: Hyperuricaemia
     Route: 048

REACTIONS (2)
  - Lactic acidosis [Recovered/Resolved]
  - Acute kidney injury [Recovered/Resolved]
